FAERS Safety Report 11501623 (Version 1)
Quarter: 2015Q3

REPORT INFORMATION
  Report Type: Report from Study
  Country: BG (occurrence: BG)
  Receive Date: 20150914
  Receipt Date: 20150914
  Transmission Date: 20151125
  Serious: Yes (Hospitalization)
  Sender: FDA-Public Use
  Company Number: BG-BAXALTA-2015BAX017700

PATIENT
  Age: 6 Year
  Sex: Male
  Weight: 27.6 kg

DRUGS (5)
  1. PEGYLATED RECOMBINANT HUMAN FACTOR VIII [Suspect]
     Active Substance: RURIOCTOCOG ALFA PEGOL
     Indication: HAEMORRHAGE PROPHYLAXIS
     Dosage: 436 IU, ONCE
     Route: 042
     Dates: start: 20150331, end: 20150331
  2. PEGYLATED RECOMBINANT HUMAN FACTOR VIII [Suspect]
     Active Substance: RURIOCTOCOG ALFA PEGOL
     Indication: FACTOR VIII DEFICIENCY
     Dosage: 1652 IU, ONCE
     Route: 042
     Dates: start: 20150329, end: 20150329
  3. ADVATE [Suspect]
     Active Substance: ANTIHEMOPHILIC FACTOR, HUMAN RECOMBINANT
     Indication: INFUSION
  4. ADVATE [Suspect]
     Active Substance: ANTIHEMOPHILIC FACTOR, HUMAN RECOMBINANT
     Indication: FACTOR VIII DEFICIENCY
     Dosage: 1534IU (INTERNATIONAL UNIT)ONCE
     Route: 042
     Dates: start: 20150325, end: 20150325
  5. PEGYLATED RECOMBINANT HUMAN FACTOR VIII [Suspect]
     Active Substance: RURIOCTOCOG ALFA PEGOL
     Indication: DRUG LEVEL
     Dosage: 972 IU, ONCE
     Route: 042
     Dates: start: 20150331, end: 20150331

REACTIONS (2)
  - Gastritis [Recovered/Resolved]
  - Viral infection [None]

NARRATIVE: CASE EVENT DATE: 20150329
